FAERS Safety Report 12389656 (Version 2)
Quarter: 2016Q2

REPORT INFORMATION
  Report Type: Spontaneous
  Country: BR (occurrence: US)
  Receive Date: 20160520
  Receipt Date: 20160520
  Transmission Date: 20160815
  Serious: Yes (Death)
  Sender: FDA-Public Use
  Company Number: BR-JNJFOC-20160515260

PATIENT
  Age: 24 Year
  Sex: Male

DRUGS (2)
  1. IMOSEC [Suspect]
     Active Substance: LOPERAMIDE
     Route: 065
  2. IMOSEC [Suspect]
     Active Substance: LOPERAMIDE
     Indication: PRODUCT USED FOR UNKNOWN INDICATION
     Route: 065

REACTIONS (2)
  - Overdose [Fatal]
  - Drug abuse [Fatal]
